FAERS Safety Report 9850749 (Version 2)
Quarter: 2014Q1

REPORT INFORMATION
  Report Type: Spontaneous
  Country: US (occurrence: US)
  Receive Date: 20140128
  Receipt Date: 20140327
  Transmission Date: 20141002
  Serious: Yes (Other)
  Sender: FDA-Public Use
  Company Number: US-PFIZER INC-2014023007

PATIENT
  Age: 57 Year
  Sex: Female

DRUGS (8)
  1. LYRICA [Suspect]
     Indication: RADICULAR PAIN
     Dosage: UNK
     Dates: start: 20110712
  2. LYRICA [Suspect]
     Indication: POST LAMINECTOMY SYNDROME
     Dosage: 150 MG, 2X/DAY
     Dates: start: 2013
  3. LYRICA [Suspect]
     Dosage: 150 MG, 3X/DAY
  4. MORPHINE SULFATE [Suspect]
     Dosage: UNK
  5. NARCAN [Suspect]
     Indication: SEDATION
     Dosage: UNK
  6. NARCAN [Suspect]
     Indication: HALLUCINATION
  7. METFORMIN [Concomitant]
     Indication: DIABETES MELLITUS
     Dosage: UNK
  8. FLEXERIL [Concomitant]
     Dosage: UNK
     Dates: start: 20120321

REACTIONS (7)
  - Renal failure acute [Recovered/Resolved]
  - Glomerular filtration rate abnormal [Recovered/Resolved]
  - Blood creatinine abnormal [Recovering/Resolving]
  - Blood potassium increased [Recovering/Resolving]
  - Blood urea increased [Recovering/Resolving]
  - Cystitis [Unknown]
  - Overdose [Recovered/Resolved]
